FAERS Safety Report 16611202 (Version 3)
Quarter: 2019Q4

REPORT INFORMATION
  Report Type: Spontaneous
  Country: US (occurrence: US)
  Receive Date: 20190722
  Receipt Date: 20191115
  Transmission Date: 20200122
  Serious: No
  Sender: FDA-Public Use
  Company Number: US-SA-2019SA194705

PATIENT
  Age: 49 Year
  Sex: Female

DRUGS (2)
  1. DUPIXENT [Suspect]
     Active Substance: DUPILUMAB
     Indication: ASTHMA
     Dosage: 300 MG, QOW
     Route: 058
     Dates: start: 20190619, end: 20191104
  2. PREDNISONE. [Suspect]
     Active Substance: PREDNISONE

REACTIONS (3)
  - Respiration abnormal [Unknown]
  - Acne [Recovered/Resolved]
  - Drug ineffective [Unknown]
